FAERS Safety Report 17240936 (Version 1)
Quarter: 2020Q1

REPORT INFORMATION
  Report Type: Spontaneous
  Country: FR (occurrence: FR)
  Receive Date: 20200107
  Receipt Date: 20200107
  Transmission Date: 20200409
  Serious: Yes (Disabling, Other)
  Sender: FDA-Public Use
  Company Number: FR-SA-2019SA362530

PATIENT
  Age: 41 Year
  Sex: Male

DRUGS (1)
  1. RIFINAH [Suspect]
     Active Substance: ISONIAZID\RIFAMPIN
     Indication: LATENT TUBERCULOSIS
     Route: 048
     Dates: start: 20190905, end: 20190925

REACTIONS (2)
  - Deafness bilateral [Not Recovered/Not Resolved]
  - Acute vestibular syndrome [Recovered/Resolved]

NARRATIVE: CASE EVENT DATE: 201909
